FAERS Safety Report 5897426-6 (Version None)
Quarter: 2008Q3

REPORT INFORMATION
  Report Type: 
  Country: None (occurrence: None)
  Receive Date: 20080925
  Receipt Date: 20080917
  Transmission Date: 20090109
  Serious: Yes (Hospitalization)
  Sender: FDA-Public Use
  Company Number: PL-JNJFOC-20080904625

PATIENT
  Sex: Male
  Weight: 85 kg

DRUGS (10)
  1. TRAMAL [Suspect]
     Indication: PAIN
     Route: 048
     Dates: start: 20080725, end: 20080803
  2. MYOLASTAN [Suspect]
     Indication: DRUG USE FOR UNKNOWN INDICATION
     Route: 048
  3. CLORAZEPIC ACID [Suspect]
     Indication: DRUG USE FOR UNKNOWN INDICATION
     Route: 048
  4. BACLOFEN [Suspect]
     Indication: DRUG USE FOR UNKNOWN INDICATION
     Route: 048
  5. ENARENAL [Concomitant]
  6. TERTENSIF [Concomitant]
  7. DOXAR [Concomitant]
  8. PROSCAR [Concomitant]
  9. SIMVASTEROL [Concomitant]
  10. MONONIT [Concomitant]

REACTIONS (6)
  - DIPLOPIA [None]
  - DIZZINESS [None]
  - FATIGUE [None]
  - MUSCULAR WEAKNESS [None]
  - ROAD TRAFFIC ACCIDENT [None]
  - SOMNOLENCE [None]
